FAERS Safety Report 5187772-6 (Version None)
Quarter: 2006Q4

REPORT INFORMATION
  Report Type: 
  Country: None (occurrence: None)
  Receive Date: 20061221
  Receipt Date: 20061218
  Transmission Date: 20070319
  Serious: Yes (Hospitalization)
  Sender: FDA-Public Use
  Company Number: DE-JNJFOC-20061204552

PATIENT
  Sex: Female
  Weight: 87 kg

DRUGS (4)
  1. RISPERDAL CONSTA [Suspect]
     Indication: PSYCHOTIC DISORDER
     Route: 030
  2. ZOPICLON [Concomitant]
     Indication: SLEEP DISORDER
     Route: 048
  3. CHLORALDURAT [Concomitant]
     Indication: SLEEP DISORDER
     Route: 048
  4. ESCITALOPRAM OXALATE [Concomitant]
     Route: 048

REACTIONS (2)
  - BIPOLAR DISORDER [None]
  - DEPRESSION [None]
